FAERS Safety Report 21737711 (Version 1)
Quarter: 2022Q4

REPORT INFORMATION
  Report Type: Spontaneous
  Country: TN (occurrence: TN)
  Receive Date: 20221216
  Receipt Date: 20221216
  Transmission Date: 20230113
  Serious: Yes (Other)
  Sender: FDA-Public Use
  Company Number: TN-Hikma Pharmaceuticals USA Inc.-TN-H14001-22-03188

PATIENT
  Age: 54 Year
  Sex: Female

DRUGS (1)
  1. IMATINIB [Suspect]
     Active Substance: IMATINIB
     Indication: Chronic myeloid leukaemia
     Dosage: UNKNOWN
     Route: 065

REACTIONS (1)
  - Non-Hodgkin^s lymphoma [Unknown]
